FAERS Safety Report 18165658 (Version 1)
Quarter: 2020Q3

REPORT INFORMATION
  Report Type: Spontaneous
  Country: JO (occurrence: JO)
  Receive Date: 20200819
  Receipt Date: 20200819
  Transmission Date: 20201103
  Serious: Yes (Death, Other)
  Sender: FDA-Public Use
  Company Number: JO-SA-2020SA157276

PATIENT

DRUGS (1)
  1. MYOZYME [Suspect]
     Active Substance: ALGLUCOSIDASE ALFA
     Indication: GLYCOGEN STORAGE DISEASE TYPE II
     Dosage: UNK IU, QOW
     Route: 041
     Dates: start: 20191220, end: 20200418

REACTIONS (3)
  - Cardiomyopathy [Fatal]
  - Disease progression [Fatal]
  - Cardiac failure [Fatal]
